FAERS Safety Report 24616332 (Version 3)
Quarter: 2025Q3

REPORT INFORMATION
  Report Type: Spontaneous
  Country: US (occurrence: US)
  Receive Date: 20241114
  Receipt Date: 20250810
  Transmission Date: 20251020
  Serious: Yes (Other)
  Sender: ALEXION PHARMACEUTICALS
  Company Number: US-AstraZeneca-CH-00722152A

PATIENT
  Sex: Female

DRUGS (1)
  1. SAPHNELO [Suspect]
     Active Substance: ANIFROLUMAB-FNIA
     Indication: Systemic lupus erythematosus
     Route: 065

REACTIONS (8)
  - Lupus-like syndrome [Unknown]
  - COVID-19 [Unknown]
  - Symptom recurrence [Unknown]
  - Influenza [Unknown]
  - Herpes zoster [Unknown]
  - Cough [Unknown]
  - Drug ineffective [Unknown]
  - Product use issue [Unknown]
